FAERS Safety Report 7781287-4 (Version None)
Quarter: 2011Q3

REPORT INFORMATION
  Report Type: 
  Country: None (occurrence: None)
  Receive Date: 20110923
  Receipt Date: 20110912
  Transmission Date: 20111222
  Serious: Yes (Other)
  Sender: FDA-Public Use
  Company Number: 1000023904

PATIENT
  Age: 74 Year
  Sex: Male

DRUGS (6)
  1. ARICEPT [Concomitant]
  2. MEMANTINE [Suspect]
     Indication: DEMENTIA ALZHEIMER'S TYPE
     Dosage: 5 MG (5 MG, 1 IN 1 D), ORAL
     Route: 048
     Dates: start: 20110621, end: 20110101
  3. MEMANTINE [Suspect]
     Indication: DEMENTIA ALZHEIMER'S TYPE
     Dosage: 20 MG (20 MG, 1 IN 1 D), ORAL
     Route: 048
     Dates: start: 20110101, end: 20110811
  4. YOKU-KAN-SAN (HERBAL EXTRACT NOS) (HERBAL EXTRACT NOS) [Concomitant]
  5. METHYCOBAL (MECOBALAMIN) (MECOBALAMIN) [Concomitant]
  6. TIALAREAD (TIAPRIDE HYDROCHLORIDE) (TIAPRIDE HYDROCHLORIDE) [Concomitant]

REACTIONS (3)
  - BLOOD CREATINE PHOSPHOKINASE INCREASED [None]
  - PYREXIA [None]
  - REFUSAL OF TREATMENT BY PATIENT [None]
